FAERS Safety Report 7528091-X (Version None)
Quarter: 2011Q2

REPORT INFORMATION
  Report Type: 
  Country: None (occurrence: None)
  Receive Date: 20110607
  Receipt Date: 20110530
  Transmission Date: 20111010
  Serious: Yes (Death, Hospitalization)
  Sender: FDA-Public Use
  Company Number: JP-ELI_LILLY_AND_COMPANY-JP201105007417

PATIENT
  Sex: Male
  Weight: 49 kg

DRUGS (10)
  1. AMLODIPINE [Concomitant]
     Indication: HYPERTENSION
     Dosage: 5 MG, QD
     Route: 048
     Dates: end: 20110331
  2. MORPHINE [Concomitant]
     Indication: PAIN
     Dosage: 5 MG, UNK
     Route: 048
     Dates: start: 20110114, end: 20110331
  3. LANSOPRAZOLE [Concomitant]
     Indication: GASTRITIS PROPHYLAXIS
     Dosage: 15 MG, QD
     Route: 048
     Dates: start: 20110114, end: 20110131
  4. KENTAN [Concomitant]
     Indication: PAIN
     Dosage: 60 MG, TID
     Dates: start: 20110114, end: 20110331
  5. MS HOT PACK [Concomitant]
     Indication: PAIN
     Dosage: UNK
     Route: 062
     Dates: start: 20110310, end: 20110331
  6. GEMZAR [Suspect]
     Indication: ADENOCARCINOMA PANCREAS
     Dosage: 1400 MG, UNK
     Route: 042
     Dates: start: 20110217, end: 20110324
  7. BENZMARONE MITA [Concomitant]
     Indication: HYPERURICAEMIA
     Dosage: 25 MG, BID
     Route: 048
     Dates: end: 20110331
  8. PROCHLORPERAZINE [Concomitant]
     Indication: PROPHYLAXIS OF NAUSEA AND VOMITING
     Dosage: 5 MG, UNK
     Route: 048
     Dates: start: 20110317, end: 20110331
  9. OXYCONTIN [Concomitant]
     Indication: PAIN
     Dosage: 5 MG, UNK
     Route: 048
     Dates: start: 20110317, end: 20110331
  10. SELBEX [Concomitant]
     Indication: GASTRITIS PROPHYLAXIS
     Dosage: 50 MG, TID
     Route: 048
     Dates: start: 20110114, end: 20110331

REACTIONS (3)
  - PLEURAL EFFUSION [None]
  - INTERSTITIAL LUNG DISEASE [None]
  - WHITE BLOOD CELL COUNT DECREASED [None]
